FAERS Safety Report 18077708 (Version 3)
Quarter: 2020Q3

REPORT INFORMATION
  Report Type: Other
  Country: PL (occurrence: PL)
  Receive Date: 20200727
  Receipt Date: 20200825
  Transmission Date: 20201103
  Serious: Yes (Other)
  Sender: FDA-Public Use
  Company Number: PL-ARBOR PHARMACEUTICALS, LLC-PL-2020ARB000579

PATIENT
  Age: 66 Year
  Sex: Male

DRUGS (10)
  1. TRIPTODUR [Suspect]
     Active Substance: TRIPTORELIN
  2. INSULIN LISPRO [Concomitant]
     Active Substance: INSULIN LISPRO
     Indication: DIABETES MELLITUS
     Dosage: 18 UNITS ? 20 UNITS
  3. TRIPTODUR [Suspect]
     Active Substance: TRIPTORELIN
     Indication: RECTAL CANCER
     Dosage: UNK
     Route: 048
     Dates: start: 201610
  4. GLUCOPHAGE XR [Suspect]
     Active Substance: METFORMIN HYDROCHLORIDE
     Indication: DIABETES MELLITUS
     Dosage: 1000 MG, (2 TABLETS)
     Route: 065
  5. TRIPTODUR [Suspect]
     Active Substance: TRIPTORELIN
  6. XELODA [Suspect]
     Active Substance: CAPECITABINE
     Indication: RECTAL CANCER
     Dosage: 4300 MG, QD
     Route: 048
     Dates: start: 20170123
  7. HUMALOG MIX75/25 [Suspect]
     Active Substance: INSULIN LISPRO
     Indication: DIABETES MELLITUS
     Dosage: 18 UNITS?20 UNITS
     Route: 065
  8. TRIPTODUR [Suspect]
     Active Substance: TRIPTORELIN
     Indication: OFF LABEL USE
  9. OMNIC OCAS [Suspect]
     Active Substance: TAMSULOSIN HYDROCHLORIDE
     Indication: PROSTATE CANCER
     Dosage: 0.4 MG, UNK
     Route: 065
     Dates: start: 20161001
  10. APO?FLUTAM [Suspect]
     Active Substance: FLUTAMIDE
     Indication: PROSTATE CANCER
     Dosage: 250 MG, (1 PILL)
     Route: 048
     Dates: start: 20161001

REACTIONS (8)
  - Cardiac disorder [Not Recovered/Not Resolved]
  - Off label use [Unknown]
  - Cough [Not Recovered/Not Resolved]
  - Asthenia [Not Recovered/Not Resolved]
  - Pain in extremity [Not Recovered/Not Resolved]
  - Decreased appetite [Not Recovered/Not Resolved]
  - Lacrimation increased [Not Recovered/Not Resolved]
  - Taste disorder [Not Recovered/Not Resolved]

NARRATIVE: CASE EVENT DATE: 201610
